FAERS Safety Report 7596671-1 (Version None)
Quarter: 2011Q3

REPORT INFORMATION
  Report Type: 
  Country: None (occurrence: None)
  Receive Date: 20110708
  Receipt Date: 20110627
  Transmission Date: 20111222
  Serious: Yes (Hospitalization, Other)
  Sender: FDA-Public Use
  Company Number: US-ELI_LILLY_AND_COMPANY-US201104006470

PATIENT
  Sex: Female

DRUGS (15)
  1. XANAX [Concomitant]
     Dosage: 1 MG, UNK
  2. FORTEO [Suspect]
     Indication: OSTEOPOROSIS
     Dosage: 20 UG, QD
     Dates: start: 20110412
  3. CAPTOPRIL [Concomitant]
     Dosage: 1 DF, UNK
  4. SPIRIVA [Concomitant]
     Dosage: 18 UG, UNK
  5. LABETALOL HCL [Concomitant]
     Dosage: 200 MG, UNK
  6. ASPIRIN [Concomitant]
     Dosage: 325 MG, QD
  7. DOXYCYCLINE [Concomitant]
     Dosage: 100 MG, UNK
  8. NEXIUM [Concomitant]
     Dosage: 40 MG, UNK
  9. XOPENEX [Concomitant]
  10. SENOKOT [Concomitant]
     Indication: CONSTIPATION
  11. ANTIBIOTICS [Concomitant]
  12. FORTEO [Suspect]
     Dosage: 20 UG, QD
  13. PERCOCET [Concomitant]
     Indication: PAIN
     Dosage: 10 MG, UNK
  14. PREDNISONE [Concomitant]
     Dosage: 20 MG, UNK
  15. OXYGEN [Concomitant]
     Dosage: UNK, EACH EVENING

REACTIONS (9)
  - OXYGEN CONSUMPTION DECREASED [None]
  - MUSCLE SPASMS [None]
  - CHOLECYSTECTOMY [None]
  - BONE PAIN [None]
  - HEART RATE IRREGULAR [None]
  - PYREXIA [None]
  - DYSPNOEA [None]
  - BLOOD GLUCOSE INCREASED [None]
  - PROCEDURAL PAIN [None]
